FAERS Safety Report 10330646 (Version 1)
Quarter: 2014Q3

REPORT INFORMATION
  Report Type: Spontaneous
  Country: CN (occurrence: None)
  Receive Date: 20140717
  Receipt Date: 20140717
  Transmission Date: 20150326
  Serious: Yes (Life-Threatening)
  Sender: FDA-Public Use
  Company Number: 2442126

PATIENT
  Age: 58 Year
  Sex: Female

DRUGS (8)
  1. CALCIUM FOLINATE [Suspect]
     Active Substance: LEUCOVORIN CALCIUM
     Indication: COLON CANCER STAGE IV
     Dosage: 0.68, CYCLICAL, INTRAVENOUS BOLUS
     Route: 040
     Dates: end: 20110511
  2. BEVACIZUMAB [Suspect]
     Active Substance: BEVACIZUMAB
     Indication: METASTASIS
     Dosage: 300 MG MILLIGRAM(S) CYCLICAL, INTRAVENOUS
     Route: 041
     Dates: end: 20110511
  3. 5-FU [Suspect]
     Active Substance: FLUOROURACIL
     Indication: COLON CANCER STAGE IV
     Dosage: 0.68, CYCLICA., INTRAVENOUS BOLUS
     Route: 040
     Dates: end: 20110511
  4. OXALIPLATIN. [Suspect]
     Active Substance: OXALIPLATIN
     Indication: COLON CANCER STAGE IV
     Dosage: 150 MG MILLIGRAM(S) (CYCLICAL)
     Route: 041
     Dates: end: 20110511
  5. 5-FU [Suspect]
     Active Substance: FLUOROURACIL
     Indication: METASTASIS
     Dosage: 0.68, CYCLICA., INTRAVENOUS BOLUS
     Route: 040
     Dates: end: 20110511
  6. CALCIUM FOLINATE [Suspect]
     Active Substance: LEUCOVORIN CALCIUM
     Indication: METASTASIS
     Dosage: 0.68, CYCLICAL, INTRAVENOUS BOLUS
     Route: 040
     Dates: end: 20110511
  7. BEVACIZUMAB [Suspect]
     Active Substance: BEVACIZUMAB
     Indication: COLON CANCER STAGE IV
     Dosage: 300 MG MILLIGRAM(S) CYCLICAL, INTRAVENOUS
     Route: 041
     Dates: end: 20110511
  8. OXALIPLATIN. [Suspect]
     Active Substance: OXALIPLATIN
     Indication: METASTASIS
     Dosage: 150 MG MILLIGRAM(S) (CYCLICAL)
     Route: 041
     Dates: end: 20110511

REACTIONS (8)
  - Lacunar infarction [None]
  - Cerebral arteriosclerosis [None]
  - Cerebral artery stenosis [None]
  - Therapy responder [None]
  - Aphagia [None]
  - No therapeutic response [None]
  - Posterior reversible encephalopathy syndrome [None]
  - Cerebral atrophy [None]

NARRATIVE: CASE EVENT DATE: 20110607
